FAERS Safety Report 6396852-9 (Version None)
Quarter: 2009Q4

REPORT INFORMATION
  Report Type: 
  Country: None (occurrence: None)
  Receive Date: 20091012
  Receipt Date: 20090709
  Transmission Date: 20100525
  Serious: No
  Sender: FDA-Public Use
  Company Number: US-ASTRAZENECA-2009UW19199

PATIENT
  Age: 67 Year
  Sex: Female
  Weight: 90.7 kg

DRUGS (5)
  1. SYMBICORT [Suspect]
     Dosage: 160/ 4.5, 2 PUFFS
     Route: 055
     Dates: start: 20080101
  2. LEVOTHYROXINE [Concomitant]
  3. VENAZAPRIL [Concomitant]
  4. CITALOPRAM HYDROBROMIDE [Concomitant]
  5. PRIMIDONE [Concomitant]

REACTIONS (2)
  - DYSPHONIA [None]
  - VOCAL CORD POLYP [None]
